FAERS Safety Report 14252603 (Version 1)
Quarter: 2017Q4

REPORT INFORMATION
  Report Type: Spontaneous
  Country: AU (occurrence: AU)
  Receive Date: 20171205
  Receipt Date: 20171205
  Transmission Date: 20180321
  Serious: Yes (Hospitalization)
  Sender: FDA-Public Use
  Company Number: AU-CASPER PHARMA, LLC-CAS201711-000150

PATIENT
  Age: 15 Year
  Sex: Male

DRUGS (3)
  1. PREDNISOLONE. [Concomitant]
     Active Substance: PREDNISOLONE
  2. TACROLIMUS. [Concomitant]
     Active Substance: TACROLIMUS
  3. AZATHIOPRINE. [Suspect]
     Active Substance: AZATHIOPRINE
     Indication: RENAL TRANSPLANT

REACTIONS (2)
  - Non-cirrhotic portal hypertension [Unknown]
  - Pancytopenia [None]
